FAERS Safety Report 6647955-2 (Version None)
Quarter: 2010Q1

REPORT INFORMATION
  Report Type: 
  Country: None (occurrence: None)
  Receive Date: 20100318
  Receipt Date: 20100308
  Transmission Date: 20100710
  Serious: Yes (Hospitalization, Other)
  Sender: FDA-Public Use
  Company Number: 2010AL001523

PATIENT
  Age: 28 Year
  Sex: Female

DRUGS (2)
  1. FEVERALL [Suspect]
  2. PAROXETINE HCL [Concomitant]

REACTIONS (6)
  - AGGRESSION [None]
  - DEPRESSION [None]
  - DRUG WITHDRAWAL SYNDROME [None]
  - LOSS OF LIBIDO [None]
  - OVERDOSE [None]
  - TEARFULNESS [None]
